FAERS Safety Report 6586483-X (Version None)
Quarter: 2010Q1

REPORT INFORMATION
  Report Type: 
  Country: None (occurrence: None)
  Receive Date: 20100217
  Receipt Date: 20090311
  Transmission Date: 20100710
  Serious: No
  Sender: FDA-Public Use
  Company Number: US-ALLERGAN-0903280US

PATIENT
  Age: 60 Year
  Sex: Female

DRUGS (2)
  1. BOTOX COSMETIC [Suspect]
     Indication: SKIN WRINKLING
     Dosage: 27.5 UNITS, SINGLE
     Route: 030
     Dates: start: 20090304, end: 20090304
  2. BOTOX COSMETIC [Suspect]
     Dosage: 1.25 UNITS, SINGLE
     Route: 030
     Dates: start: 20090311, end: 20090311

REACTIONS (1)
  - BURNING SENSATION [None]
